FAERS Safety Report 18156012 (Version 1)
Quarter: 2020Q3

REPORT INFORMATION
  Report Type: Spontaneous
  Country: PH (occurrence: PH)
  Receive Date: 20200817
  Receipt Date: 20200817
  Transmission Date: 20201103
  Serious: Yes (Death, Other)
  Sender: FDA-Public Use
  Company Number: PH-ROCHE-2657826

PATIENT
  Age: 71 Year
  Sex: Male
  Weight: 86 kg

DRUGS (1)
  1. ACTEMRA [Suspect]
     Active Substance: TOCILIZUMAB
     Indication: COVID-19 PNEUMONIA
     Route: 042
     Dates: start: 20200322, end: 20200322

REACTIONS (9)
  - Hypotension [Unknown]
  - Intentional product use issue [Unknown]
  - Ventricular tachycardia [Unknown]
  - Renal replacement therapy [Unknown]
  - Hypoxia [Unknown]
  - Inflammatory marker increased [Unknown]
  - Ventricular fibrillation [Fatal]
  - Off label use [Unknown]
  - Haemoperfusion [Unknown]
